FAERS Safety Report 6141822-9 (Version None)
Quarter: 2009Q2

REPORT INFORMATION
  Report Type: 
  Country: None (occurrence: None)
  Receive Date: 20090402
  Receipt Date: 20090327
  Transmission Date: 20091009
  Serious: Yes (Hospitalization)
  Sender: FDA-Public Use
  Company Number: US-AVENTIS-200911045US

PATIENT
  Sex: Female
  Weight: 125.19 kg

DRUGS (2)
  1. LANTUS [Suspect]
     Route: 058
     Dates: start: 20051215
  2. OPTICLIK (INSULIN INJECTION PEN) [Suspect]
     Dates: start: 20060113

REACTIONS (1)
  - CARDIAC PACEMAKER INSERTION [None]
